FAERS Safety Report 23422449 (Version 1)
Quarter: 2024Q1

REPORT INFORMATION
  Report Type: Spontaneous
  Country: US (occurrence: None)
  Receive Date: 20240118
  Receipt Date: 20240118
  Transmission Date: 20240409
  Serious: Yes (Other)
  Sender: FDA-Public Use
  Company Number: None

PATIENT
  Age: 80 Year
  Sex: Male
  Weight: 128.5 kg

DRUGS (10)
  1. REMDESIVIR [Suspect]
     Active Substance: REMDESIVIR
     Dates: start: 20240114, end: 20240116
  2. AMIODARONE [Suspect]
     Active Substance: AMIODARONE
     Dates: start: 20240112, end: 20240116
  3. DILTIAZEM [Concomitant]
     Active Substance: DILTIAZEM
     Dates: start: 20240118, end: 20240118
  4. hydrocortisone injection [Concomitant]
     Dates: start: 20240114
  5. morphine injection and SR tabs [Concomitant]
     Dates: start: 20240114
  6. APIXABAN [Concomitant]
     Active Substance: APIXABAN
     Dates: start: 20240114
  7. ASPIRIN [Concomitant]
     Active Substance: ASPIRIN
     Dates: start: 20240115
  8. AZITHROMYCIN [Concomitant]
     Active Substance: AZITHROMYCIN
     Dates: start: 20240114, end: 20240115
  9. CEFEPIME [Concomitant]
     Active Substance: CEFEPIME HYDROCHLORIDE
     Dates: start: 20240114, end: 20240116
  10. VANCOMYCIN [Concomitant]
     Active Substance: VANCOMYCIN
     Dates: start: 20240114, end: 20240116

REACTIONS (12)
  - Mental status changes [None]
  - Peripheral coldness [None]
  - Atrial fibrillation [None]
  - SARS-CoV-2 test positive [None]
  - Acute respiratory failure [None]
  - Sepsis [None]
  - Pneumonia [None]
  - Metabolic acidosis [None]
  - Acute kidney injury [None]
  - Liver injury [None]
  - Therapy interrupted [None]
  - Metastases to liver [None]
